FAERS Safety Report 9371601 (Version 1)
Quarter: 2013Q2

REPORT INFORMATION
  Report Type: Spontaneous
  Country: US (occurrence: None)
  Receive Date: 20130626
  Receipt Date: 20130626
  Transmission Date: 20140414
  Serious: No
  Sender: FDA-Public Use
  Company Number: None

PATIENT
  Age: 42 Year
  Sex: Male
  Weight: 63 kg

DRUGS (2)
  1. LISINOPRIL [Suspect]
     Indication: CARDIAC FAILURE CONGESTIVE
     Dosage: 5 MG  EVERY DAY  PO
     Route: 048
     Dates: start: 20130320, end: 20130612
  2. LISINOPRIL [Suspect]
     Indication: HYPERTENSION
     Dosage: 5 MG  EVERY DAY  PO
     Route: 048
     Dates: start: 20130320, end: 20130612

REACTIONS (2)
  - Cough [None]
  - Wheezing [None]
